FAERS Safety Report 7639856-8 (Version None)
Quarter: 2011Q3

REPORT INFORMATION
  Report Type: 
  Country: None (occurrence: None)
  Receive Date: 20110727
  Receipt Date: 20110718
  Transmission Date: 20111222
  Serious: Yes (Other)
  Sender: FDA-Public Use
  Company Number: DE-ASTRAZENECA-2011SE42719

PATIENT

DRUGS (2)
  1. PRILOCAINE HYDROCHLORIDE [Suspect]
     Route: 053
  2. BUPIVACAINE HCL [Suspect]
     Route: 053

REACTIONS (2)
  - GRAND MAL CONVULSION [None]
  - HYPERTENSION [None]
